FAERS Safety Report 7834393-X (Version None)
Quarter: 2011Q4

REPORT INFORMATION
  Report Type: 
  Country: None (occurrence: None)
  Receive Date: 20111024
  Receipt Date: 20111018
  Transmission Date: 20120403
  Serious: Yes (Hospitalization)
  Sender: FDA-Public Use
  Company Number: PHHY2011CH68443

PATIENT
  Age: 68 Year
  Sex: Female

DRUGS (4)
  1. BONIVA [Suspect]
     Indication: OSTEOPOROSIS
     Dosage: 150 MG, MONTHLY ORAL DOSE
     Route: 048
     Dates: start: 20080501, end: 20101001
  2. CALCIMAGON [Concomitant]
     Dosage: UNK UKN, BID
     Route: 048
  3. ZOLEDRONOC ACID [Suspect]
     Indication: OSTEOPOROSIS
     Dosage: 5 MG, YEARLY DOSE
     Route: 042
     Dates: start: 20101101, end: 20110701
  4. DEANXIT [Concomitant]
     Dosage: UNK UKN, UNK
     Route: 048

REACTIONS (4)
  - ARTHRALGIA [None]
  - FALL [None]
  - FEMUR FRACTURE [None]
  - LOWER LIMB FRACTURE [None]
